FAERS Safety Report 9467886 (Version 1)
Quarter: 2013Q3

REPORT INFORMATION
  Report Type: Spontaneous
  Country: DK (occurrence: DK)
  Receive Date: 20130821
  Receipt Date: 20130821
  Transmission Date: 20140515
  Serious: Yes (Hospitalization, Other)
  Sender: FDA-Public Use
  Company Number: PHHY2013DK089768

PATIENT
  Age: 15 Year
  Sex: Female
  Weight: 49.2 kg

DRUGS (4)
  1. SANDOSTATIN LAR [Suspect]
     Indication: HYPOGLYCAEMIA
     Dosage: 10 MG/AMPULE
     Route: 030
     Dates: start: 20120418
  2. SANDOSTATIN LAR [Suspect]
     Indication: OFF LABEL USE
  3. PROGLYCEM ^TEVA/GATE^ [Suspect]
     Indication: HYPOGLYCAEMIA
     Dosage: 50 MG, QD
     Route: 048
     Dates: start: 20120320
  4. MICROGYN [Suspect]
     Indication: DYSMENORRHOEA
     Dosage: 1 DF (0,15 + 0,03 MG)
     Route: 048
     Dates: start: 20130116

REACTIONS (3)
  - Fall [Unknown]
  - Femur fracture [Unknown]
  - Bone cyst [Unknown]
